FAERS Safety Report 9281045 (Version 1)
Quarter: 2013Q2

REPORT INFORMATION
  Report Type: Report from Study
  Country: AR (occurrence: AR)
  Receive Date: 20130509
  Receipt Date: 20130509
  Transmission Date: 20140414
  Serious: Yes (Hospitalization, Other)
  Sender: FDA-Public Use
  Company Number: AR-GLAXOSMITHKLINE-B0890409A

PATIENT
  Age: 78 Year
  Sex: Male

DRUGS (8)
  1. OMEGA-3-ACID ETHYL ESTERS [Suspect]
     Indication: PRODUCT USED FOR UNKNOWN INDICATION
     Dosage: 1000MG PER DAY
     Route: 048
     Dates: start: 20050218, end: 20080910
  2. LANTUS OPTIPEN [Suspect]
     Indication: DIABETES MELLITUS
     Route: 058
     Dates: start: 20050218
  3. ASPIRINE [Suspect]
     Indication: PROPHYLAXIS
     Dosage: 100MG PER DAY
     Route: 065
     Dates: start: 200802, end: 200809
  4. SINTROM [Suspect]
     Indication: ATRIAL FIBRILLATION
     Dosage: 1MG PER DAY
     Route: 065
     Dates: start: 200503, end: 200809
  5. HYDROCHLOROTHIAZIDE [Suspect]
     Indication: HYPERTENSION
     Dosage: 12.5MG PER DAY
     Route: 065
     Dates: start: 200802, end: 200809
  6. AMIODARONE HYDROCHLORIDE [Concomitant]
     Dates: start: 200802, end: 200809
  7. METFORMIN HYDROCHLORIDE [Concomitant]
     Dates: start: 200502, end: 200809
  8. LOSARTAN POTASSIUM [Concomitant]
     Dates: start: 200802, end: 200809

REACTIONS (2)
  - Myelodysplastic syndrome [Recovered/Resolved]
  - Thrombocytopenia [Recovered/Resolved]
